FAERS Safety Report 6403349-6 (Version None)
Quarter: 2009Q4

REPORT INFORMATION
  Report Type: 
  Country: None (occurrence: None)
  Receive Date: 20091016
  Receipt Date: 20091006
  Transmission Date: 20100525
  Serious: Yes (Other)
  Sender: FDA-Public Use
  Company Number: US-ABBOTT-09P-163-0601039-00

PATIENT
  Age: 36 Year
  Sex: Female

DRUGS (4)
  1. VICODIN [Suspect]
     Indication: DRUG ABUSE
     Route: 045
  2. TYLOX [Suspect]
     Indication: DRUG ABUSE
     Dosage: CRUSHING AND SNORTING 5 PILLS 4-5 X PER DAY FOR MONTHS
     Route: 045
  3. PERCOCET [Suspect]
     Indication: DRUG ABUSE
     Route: 045
  4. LORCET-HD [Suspect]
     Indication: DRUG ABUSE
     Route: 045

REACTIONS (6)
  - DRUG ABUSE [None]
  - ENTEROCOCCAL INFECTION [None]
  - INCORRECT ROUTE OF DRUG ADMINISTRATION [None]
  - INTENTIONAL OVERDOSE [None]
  - KLEBSIELLA INFECTION [None]
  - NASAL NECROSIS [None]
